FAERS Safety Report 9206539 (Version 2)
Quarter: 2013Q2

REPORT INFORMATION
  Report Type: Spontaneous
  Country: SG (occurrence: None)
  Receive Date: 20130401
  Receipt Date: 20130513
  Transmission Date: 20140414
  Serious: Yes (Hospitalization)
  Sender: FDA-Public Use
  Company Number: SYM-2013-02198

PATIENT
  Age: 29 Year
  Sex: Male

DRUGS (7)
  1. 5-FU [Suspect]
     Indication: COLORECTAL CANCER METASTATIC
     Route: 040
     Dates: start: 20121112, end: 20121112
  2. BLINDED THERAPY [Suspect]
     Indication: COLORECTAL CANCER METASTATIC
     Route: 041
     Dates: start: 20121112, end: 20121112
  3. IRINOTECAN [Suspect]
     Indication: COLORECTAL CANCER METASTATIC
     Dosage: 180 MG/M2 EVERY OTHER WEEK
     Route: 041
     Dates: start: 20121112, end: 20121112
  4. LEUCOVORIN [Suspect]
     Indication: COLORECTAL CANCER METASTATIC
     Dosage: 400 MG/M2 EVERY OTHER WEEK
     Route: 041
     Dates: start: 20121112, end: 20121112
  5. METFORMIN HYDROCHLORIDE (METFORMIN HYDROCHLORIDE) (METFORMIN HYDROCHLORIDE) [Concomitant]
  6. GLICAZIDE (GLICAZIDE) (GLICLAZIDE) [Concomitant]
  7. OMEPRAZOLE (OMEPRAZOLE) (OMEPRAZOLE) [Concomitant]

REACTIONS (2)
  - White blood cell count decreased [None]
  - Neutropenic sepsis [None]
